FAERS Safety Report 17336010 (Version 2)
Quarter: 2020Q1

REPORT INFORMATION
  Report Type: Spontaneous
  Country: US (occurrence: US)
  Receive Date: 20200129
  Receipt Date: 20200213
  Transmission Date: 20200409
  Serious: Yes (Other)
  Sender: FDA-Public Use
  Company Number: US-AMGEN-USASP2020014585

PATIENT
  Age: 66 Year
  Sex: Female
  Weight: 45.36 kg

DRUGS (2)
  1. VITAMINS [ASCORBIC ACID;ERGOCALCIFEROL;NICOTINAMIDE;RETINOL;RIBOFLAVIN [Concomitant]
     Dosage: UNK
  2. ENBREL [Suspect]
     Active Substance: ETANERCEPT
     Indication: RHEUMATOID ARTHRITIS
     Dosage: 50 MILLIGRAM, QWK
     Route: 058

REACTIONS (4)
  - Rheumatoid arthritis [Recovered/Resolved]
  - Joint injury [Unknown]
  - Tendon injury [Unknown]
  - Condition aggravated [Unknown]

NARRATIVE: CASE EVENT DATE: 20190131
